FAERS Safety Report 23594146 (Version 1)
Quarter: 2024Q1

REPORT INFORMATION
  Report Type: Spontaneous
  Country: TW (occurrence: TW)
  Receive Date: 20240305
  Receipt Date: 20240305
  Transmission Date: 20240410
  Serious: Yes (Other)
  Sender: FDA-Public Use
  Company Number: TW-002147023-NVSC2023TW129171

PATIENT
  Age: 24 Year
  Sex: Male

DRUGS (8)
  1. MYCOPHENOLATE SODIUM [Suspect]
     Active Substance: MYCOPHENOLATE SODIUM
     Indication: Lupus nephritis
     Dosage: 720 MG
     Route: 048
     Dates: start: 20221117
  2. MYCOPHENOLATE SODIUM [Suspect]
     Active Substance: MYCOPHENOLATE SODIUM
     Dosage: 180
     Route: 048
  3. MYCOPHENOLATE SODIUM [Suspect]
     Active Substance: MYCOPHENOLATE SODIUM
     Dosage: 360
     Route: 048
     Dates: start: 20230810, end: 20230906
  4. CYCLOSPORINE [Concomitant]
     Active Substance: CYCLOSPORINE
     Indication: Systemic lupus erythematosus
     Dosage: UNK
     Route: 048
     Dates: start: 20230420, end: 20230614
  5. DIOVAN [Concomitant]
     Active Substance: VALSARTAN
     Indication: Proteinuria
     Dosage: UNK
     Route: 048
     Dates: start: 20230105
  6. METHYLPREDNISOLONE [Concomitant]
     Active Substance: METHYLPREDNISOLONE
     Indication: Proteinuria
     Dosage: UNK
     Route: 042
     Dates: start: 20230202, end: 20230204
  7. PREDNISOLONE [Concomitant]
     Active Substance: PREDNISOLONE
     Indication: Lupus nephritis
     Dosage: UNK
     Route: 048
     Dates: start: 20220822
  8. VALSARTAN [Concomitant]
     Active Substance: VALSARTAN
     Indication: Proteinuria
     Dosage: UNK
     Route: 048
     Dates: start: 20230505

REACTIONS (10)
  - Systemic lupus erythematosus [Unknown]
  - Proteinuria [Unknown]
  - Haematuria [Unknown]
  - Rash [Recovering/Resolving]
  - Oral candidiasis [Recovered/Resolved]
  - Folliculitis [Not Recovered/Not Resolved]
  - Oedema [Recovered/Resolved]
  - Pruritus [Not Recovered/Not Resolved]
  - Arthralgia [Not Recovered/Not Resolved]
  - Pruritus [Recovered/Resolved]

NARRATIVE: CASE EVENT DATE: 20230130
